FAERS Safety Report 21081814 (Version 1)
Quarter: 2022Q3

REPORT INFORMATION
  Report Type: Spontaneous
  Country: US (occurrence: US)
  Receive Date: 20220714
  Receipt Date: 20220714
  Transmission Date: 20221027
  Serious: Yes (Other)
  Sender: FDA-Public Use
  Company Number: US-ViiV Healthcare Limited-82065

PATIENT

DRUGS (3)
  1. CABENUVA [Suspect]
     Active Substance: CABOTEGRAVIR\RILPIVIRINE
     Indication: Product used for unknown indication
     Dosage: UNK UNK, Z(EVERY 30 DAYS)
     Dates: start: 2022, end: 2022
  2. CABENUVA [Suspect]
     Active Substance: CABOTEGRAVIR\RILPIVIRINE
     Dosage: UNK UNK, Z(EVERY 60 DAYS)
     Dates: start: 2022
  3. CABENUVA [Suspect]
     Active Substance: CABOTEGRAVIR\RILPIVIRINE

REACTIONS (11)
  - Neuropathy peripheral [Not Recovered/Not Resolved]
  - Lethargy [Not Recovered/Not Resolved]
  - Decreased appetite [Not Recovered/Not Resolved]
  - Dizziness [Not Recovered/Not Resolved]
  - Alopecia [Not Recovered/Not Resolved]
  - Cognitive disorder [Not Recovered/Not Resolved]
  - Malaise [Not Recovered/Not Resolved]
  - Bone pain [Not Recovered/Not Resolved]
  - Myalgia [Not Recovered/Not Resolved]
  - Injection site nodule [Unknown]
  - Dyspnoea [Unknown]

NARRATIVE: CASE EVENT DATE: 20220101
